FAERS Safety Report 7207085-8 (Version None)
Quarter: 2011Q1

REPORT INFORMATION
  Report Type: 
  Country: None (occurrence: None)
  Receive Date: 20110103
  Receipt Date: 20101223
  Transmission Date: 20110831
  Serious: Yes (Life-Threatening, Hospitalization)
  Sender: FDA-Public Use
  Company Number: B0691720A

PATIENT
  Age: 17 Year
  Sex: Male

DRUGS (1)
  1. PROPAFENONE HYDROCHLORIDE [Suspect]
     Dosage: 3000MG CUMULATIVE DOSE
     Route: 065

REACTIONS (8)
  - OVERDOSE [None]
  - SINUS ARREST [None]
  - SINOATRIAL BLOCK [None]
  - SINUS TACHYCARDIA [None]
  - ATRIOVENTRICULAR BLOCK [None]
  - CONDUCTION DISORDER [None]
  - CARDIAC ARREST [None]
  - VENTRICULAR TACHYCARDIA [None]
